FAERS Safety Report 19264405 (Version 1)
Quarter: 2021Q2

REPORT INFORMATION
  Report Type: Spontaneous
  Country: US (occurrence: US)
  Receive Date: 20210517
  Receipt Date: 20210517
  Transmission Date: 20210717
  Serious: Yes (Hospitalization)
  Sender: FDA-Public Use
  Company Number: None

PATIENT
  Age: 43 Year
  Sex: Male
  Weight: 101.25 kg

DRUGS (1)
  1. PREGABALIN 75 MG CAPSULES [Suspect]
     Active Substance: PREGABALIN
     Indication: NEURALGIA
     Route: 048
     Dates: start: 20210430, end: 20210501

REACTIONS (2)
  - Anger [None]
  - Depressed mood [None]

NARRATIVE: CASE EVENT DATE: 20210501
